FAERS Safety Report 18879854 (Version 1)
Quarter: 2021Q1

REPORT INFORMATION
  Report Type: Spontaneous
  Country: US (occurrence: US)
  Receive Date: 20210211
  Receipt Date: 20210211
  Transmission Date: 20210420
  Serious: Yes (Other)
  Sender: FDA-Public Use
  Company Number: US-ABBVIE-21K-163-3769266-00

PATIENT
  Age: 49 Year
  Sex: Female

DRUGS (1)
  1. SYNTHROID [Suspect]
     Active Substance: LEVOTHYROXINE SODIUM
     Indication: PRODUCT USED FOR UNKNOWN INDICATION
     Route: 048
     Dates: start: 1994

REACTIONS (11)
  - Weight increased [Unknown]
  - Asthenia [Unknown]
  - Insomnia [Unknown]
  - Alopecia [Unknown]
  - Dry skin [Unknown]
  - Sleep disorder [Unknown]
  - Body fat disorder [Unknown]
  - Laboratory test abnormal [Unknown]
  - Hot flush [Not Recovered/Not Resolved]
  - Hysterectomy [Unknown]
  - Hyperhidrosis [Unknown]

NARRATIVE: CASE EVENT DATE: 2000
